FAERS Safety Report 9419983 (Version 1)
Quarter: 2013Q3

REPORT INFORMATION
  Report Type: Spontaneous
  Country: FR (occurrence: FR)
  Receive Date: 20130725
  Receipt Date: 20130725
  Transmission Date: 20140515
  Serious: Yes (Hospitalization)
  Sender: FDA-Public Use
  Company Number: FR-TEVA-421108ISR

PATIENT
  Age: 79 Year
  Sex: Female

DRUGS (7)
  1. FUROSEMIDE TEVA 40 MG [Suspect]
     Dosage: 40 MILLIGRAM DAILY; BEGINNING BEFORE MAY-2013
     Route: 048
     Dates: end: 20130609
  2. COVERAM 10 MG/5 MG [Suspect]
     Dosage: 1 DOSAGE FORMS DAILY;
     Route: 048
  3. METFORMIN [Concomitant]
     Dosage: 3 GRAM DAILY;
     Route: 048
  4. XELEVIA 100 MG [Concomitant]
     Dosage: 100 MILLIGRAM DAILY;
     Route: 048
  5. SIMVASTATINE [Concomitant]
     Dosage: 40 MILLIGRAM DAILY;
     Route: 048
  6. DUOPLAVIN 75MG/75MG [Concomitant]
     Dosage: 1 DOSAGE FORMS DAILY;
     Route: 048
  7. BISOPROLOL [Concomitant]
     Dosage: 2.5 MILLIGRAM DAILY;
     Route: 048

REACTIONS (7)
  - Cardiac failure [Recovered/Resolved]
  - Pulmonary oedema [Recovered/Resolved]
  - Dyspnoea [Recovered/Resolved]
  - Oxygen saturation decreased [Recovered/Resolved]
  - Drug dose omission [Unknown]
  - Somnolence [Recovered/Resolved]
  - Dyspnoea [Recovered/Resolved]
